FAERS Safety Report 7885024-4 (Version None)
Quarter: 2011Q4

REPORT INFORMATION
  Report Type: 
  Country: None (occurrence: None)
  Receive Date: 20111102
  Receipt Date: 20111025
  Transmission Date: 20120403
  Serious: Yes (Hospitalization)
  Sender: FDA-Public Use
  Company Number: IT-ABBOTT-11P-083-0867980-00

PATIENT
  Sex: Female

DRUGS (1)
  1. CLARITHROMYCIN [Suspect]
     Indication: PYREXIA
     Dosage: 250 ML/5ML TOTAL
     Route: 048
     Dates: start: 20110806, end: 20110806

REACTIONS (2)
  - THROAT TIGHTNESS [None]
  - URTICARIA [None]
